FAERS Safety Report 14068068 (Version 1)
Quarter: 2017Q4

REPORT INFORMATION
  Report Type: Spontaneous
  Country: US (occurrence: US)
  Receive Date: 20171009
  Receipt Date: 20171009
  Transmission Date: 20180321
  Serious: No
  Sender: FDA-Public Use
  Company Number: None

PATIENT
  Age: 23 Year
  Sex: Female
  Weight: 63 kg

DRUGS (8)
  1. VITAMIN C [Concomitant]
     Active Substance: ASCORBIC ACID
  2. DECADRON [Suspect]
     Active Substance: DEXAMETHASONE
     Indication: PROCEDURAL PAIN
     Dosage: ?          QUANTITY:1 INJECTION(S);?
     Route: 042
  3. ATARAX [Concomitant]
     Active Substance: HYDROXYZINE HYDROCHLORIDE
  4. LEXAPRO [Concomitant]
     Active Substance: ESCITALOPRAM OXALATE
  5. VITAMIN B [Concomitant]
     Active Substance: VITAMIN B
  6. PROBIOTIC SUPPLEMENTS [Concomitant]
  7. DECADRON [Suspect]
     Active Substance: DEXAMETHASONE
     Indication: WISDOM TEETH REMOVAL
     Dosage: ?          QUANTITY:1 INJECTION(S);?
     Route: 042
  8. DECADRON [Suspect]
     Active Substance: DEXAMETHASONE
     Indication: POST PROCEDURAL SWELLING
     Dosage: ?          QUANTITY:1 INJECTION(S);?
     Route: 042

REACTIONS (2)
  - Eczema [None]
  - Stress [None]

NARRATIVE: CASE EVENT DATE: 20170924
